FAERS Safety Report 20922918 (Version 1)
Quarter: 2022Q2

REPORT INFORMATION
  Report Type: Spontaneous
  Country: IN (occurrence: IN)
  Receive Date: 20220607
  Receipt Date: 20220607
  Transmission Date: 20220720
  Serious: Yes (Hospitalization, Other)
  Sender: FDA-Public Use
  Company Number: IN-ATLANTIDE PHARMACEUTICALS AG-2022ATL000042

PATIENT
  Age: 17 Year
  Sex: Female

DRUGS (1)
  1. CEFTRIAXONE [Suspect]
     Active Substance: CEFTRIAXONE
     Indication: Colitis
     Dosage: 1 GRAM, BID
     Route: 042

REACTIONS (2)
  - Cutaneous vasculitis [Recovered/Resolved]
  - Tubulointerstitial nephritis [Recovered/Resolved]
